FAERS Safety Report 23563454 (Version 1)
Quarter: 2024Q1

REPORT INFORMATION
  Report Type: Spontaneous
  Country: CO (occurrence: CO)
  Receive Date: 20240226
  Receipt Date: 20240226
  Transmission Date: 20240410
  Serious: Yes (Hospitalization, Other)
  Sender: FDA-Public Use
  Company Number: CO-BoehringerIngelheim-2024-BI-010277

PATIENT
  Age: 47 Year
  Sex: Male

DRUGS (1)
  1. PRADAXA [Suspect]
     Active Substance: DABIGATRAN ETEXILATE MESYLATE
     Indication: Anticoagulant therapy
     Dates: start: 202302

REACTIONS (1)
  - Heart transplant [Unknown]

NARRATIVE: CASE EVENT DATE: 20240219
